FAERS Safety Report 13573476 (Version 1)
Quarter: 2017Q2

REPORT INFORMATION
  Report Type: Spontaneous
  Country: US (occurrence: US)
  Receive Date: 20170523
  Receipt Date: 20170523
  Transmission Date: 20170830
  Serious: Yes (Hospitalization, Other)
  Sender: FDA-Public Use
  Company Number: US-PURDUE-CAN-2017-0007631

PATIENT
  Age: 18 Year
  Sex: Female

DRUGS (2)
  1. METHYLPHENIDATE HYDROCHLORIDE. [Suspect]
     Active Substance: METHYLPHENIDATE HYDROCHLORIDE
     Indication: DRUG USE DISORDER
     Dosage: 110 MG, UNK
  2. MODAFINIL. [Suspect]
     Active Substance: MODAFINIL
     Indication: DRUG USE DISORDER
     Dosage: 800 MG, UNK
     Route: 048

REACTIONS (11)
  - Anxiety [Recovering/Resolving]
  - Cardiomyopathy [Recovering/Resolving]
  - Heart injury [Recovering/Resolving]
  - Tachycardia [Recovering/Resolving]
  - Dizziness [Recovering/Resolving]
  - Euphoric mood [Recovering/Resolving]
  - Vomiting [Recovering/Resolving]
  - Headache [Recovering/Resolving]
  - Nausea [Recovering/Resolving]
  - Hyperhidrosis [Recovering/Resolving]
  - Substance use disorder [Unknown]
